FAERS Safety Report 8892091 (Version 1)
Quarter: 2012Q4

REPORT INFORMATION
  Report Type: 
  Country: US (occurrence: US)
  Receive Date: 20121107
  Receipt Date: 20121107
  Transmission Date: 20130627
  Serious: No
  Sender: FDA-Public Use
  Company Number: US-AMGEN-USASP2011057903

PATIENT
  Age: 52 Year
  Sex: Male
  Weight: 86.17 kg

DRUGS (8)
  1. ENBREL [Suspect]
     Indication: PRODUCT USED FOR UNKNOWN INDICATION
     Dosage: 50 mg, qwk
  2. BABY ASPIRIN [Concomitant]
  3. METHOTREXATE [Concomitant]
  4. FOLIC ACID [Concomitant]
  5. VITAMIN D /00107901/ [Concomitant]
  6. VICODIN ES [Concomitant]
  7. ETODOLAC [Concomitant]
  8. FISH OIL [Concomitant]

REACTIONS (1)
  - Headache [Unknown]
